FAERS Safety Report 7185569-9 (Version None)
Quarter: 2010Q4

REPORT INFORMATION
  Report Type: 
  Country: None (occurrence: None)
  Receive Date: 20101123
  Receipt Date: 20100924
  Transmission Date: 20110411
  Serious: No
  Sender: FDA-Public Use
  Company Number: 017479

PATIENT
  Sex: Female
  Weight: 74.5 kg

DRUGS (5)
  1. CIMZIA [Suspect]
     Indication: CROHN'S DISEASE
     Dosage: (400 MG 1X/MONTH SUBCUTANEOUS)
     Route: 058
     Dates: start: 20100601
  2. MESALAMINE [Concomitant]
  3. TRLEPTAL [Concomitant]
  4. CELEXA [Concomitant]
  5. TRAZODONE HCL [Concomitant]

REACTIONS (4)
  - PARANASAL SINUS HYPERSECRETION [None]
  - RESPIRATORY TRACT CONGESTION [None]
  - SINUS HEADACHE [None]
  - UPPER RESPIRATORY TRACT INFECTION [None]
